FAERS Safety Report 9915367 (Version 1)
Quarter: 2014Q1

REPORT INFORMATION
  Report Type: Spontaneous
  Country: US (occurrence: US)
  Receive Date: 20140221
  Receipt Date: 20140221
  Transmission Date: 20141002
  Serious: Yes (Hospitalization)
  Sender: FDA-Public Use
  Company Number: US-BIOGENIDEC-2014BI016029

PATIENT
  Age: 62 Year
  Sex: Female

DRUGS (23)
  1. AVONEX [Suspect]
     Indication: MULTIPLE SCLEROSIS
     Route: 030
     Dates: start: 20110322
  2. ALLEGRA [Concomitant]
  3. AMANTADINE HCL [Concomitant]
  4. BACLOFEN [Concomitant]
  5. BENADRYL [Concomitant]
  6. CALCIUM [Concomitant]
  7. CEFACLOR [Concomitant]
  8. FOLIC ACID [Concomitant]
  9. GABAPENTIN [Concomitant]
  10. HYOMAX-SR [Concomitant]
  11. HYOSCYAMINE [Concomitant]
  12. IMITREX STAT DOSE REFILL [Concomitant]
  13. KEPPRA [Concomitant]
  14. METOPROLOL TARTRATE [Concomitant]
  15. PATANOL [Concomitant]
  16. PRENATAL [Concomitant]
  17. PRILOSEC [Concomitant]
  18. SPIRIVA HANDIHALER [Concomitant]
  19. THERATEARS [Concomitant]
  20. TRAZODONE HCL [Concomitant]
  21. TYZEKA [Concomitant]
  22. VITAMIN B-12 [Concomitant]
  23. VITAMIN D [Concomitant]

REACTIONS (1)
  - Pneumonia [Unknown]
